FAERS Safety Report 9587624 (Version 1)
Quarter: 2013Q4

REPORT INFORMATION
  Report Type: Spontaneous
  Country: US (occurrence: US)
  Receive Date: 20131003
  Receipt Date: 20131003
  Transmission Date: 20140711
  Serious: Yes (Hospitalization)
  Sender: FDA-Public Use
  Company Number: US-COVIDIEN/TYCO HEALTHCARE/MALLINCKRODT-T201303659

PATIENT
  Age: 60 Year
  Sex: Male
  Weight: 78.91 kg

DRUGS (8)
  1. EXALGO EXTENDED RELEASE [Suspect]
     Indication: PAIN
     Dosage: 24 MG, UNK
     Dates: end: 201306
  2. EXALGO EXTENDED RELEASE [Suspect]
     Dosage: 8 MG, UNK
     Dates: start: 201304
  3. EXALGO EXTENDED RELEASE [Suspect]
     Dosage: 12 MG, UNK
  4. METOPROLOL [Concomitant]
     Indication: BLOOD PRESSURE
     Dosage: UNK, QD
  5. ASPIRIN [Concomitant]
     Indication: PROPHYLAXIS
     Dosage: 325 MG, QD
  6. XANAX [Concomitant]
     Indication: ANXIETY
     Dosage: UNK
  7. WELLBUTRIN [Concomitant]
     Indication: DEPRESSION
     Dosage: UNK
  8. LEXAPRO [Concomitant]

REACTIONS (3)
  - Drug withdrawal syndrome [Recovered/Resolved]
  - Dehydration [Recovered/Resolved]
  - Weight decreased [None]
